FAERS Safety Report 6738168-4 (Version None)
Quarter: 2010Q2

REPORT INFORMATION
  Report Type: 
  Country: None (occurrence: None)
  Receive Date: 20100524
  Receipt Date: 20100413
  Transmission Date: 20101027
  Serious: Yes (Death)
  Sender: FDA-Public Use
  Company Number: US-BAXTER-2010BH001603

PATIENT
  Sex: Male

DRUGS (1)
  1. HEPARIN SODIUM INJECTION [Suspect]
     Indication: DRUG USE FOR UNKNOWN INDICATION
     Route: 065
     Dates: start: 20080129

REACTIONS (3)
  - CARDIAC FAILURE CONGESTIVE [None]
  - HYPOPLASTIC LEFT HEART SYNDROME [None]
  - PNEUMONIA STAPHYLOCOCCAL [None]
